FAERS Safety Report 7375506 (Version 5)
Quarter: 2012Q4

REPORT INFORMATION
  Report Type: Report from Study
  Country: DE (occurrence: DE)
  Receive Date: 20100503
  Receipt Date: 20121018
  Transmission Date: 20130627
  Serious: Yes (Hospitalization, Other)
  Sender: FDA-Public Use
  Company Number: DE-ABBOTT-10P-062-0640571-00

PATIENT
  Age: 36 Year
  Sex: Male
  Weight: 77 kg

DRUGS (9)
  1. HUMIRA 40 MG/ 0.8 ML PRE-FILLED SYRINGE [Suspect]
     Indication: CROHN^S DISEASE
     Route: 058
     Dates: start: 201003, end: 201203
  2. AZATHIOPRIN [Concomitant]
     Indication: CROHN^S DISEASE
     Dosage: 2-2,5mg/kg
  3. REMERGIL [Concomitant]
     Indication: PRODUCT USED FOR UNKNOWN INDICATION
  4. SULFASALAZIN [Concomitant]
     Indication: CROHN^S DISEASE
     Dates: start: 2010
  5. BUDESONID [Concomitant]
     Indication: CROHN^S DISEASE
     Dates: start: 2010
  6. GLUCOCORTICOIDS [Concomitant]
     Indication: CROHN^S DISEASE
     Dates: start: 2010
  7. INFIXIMAB [Concomitant]
     Indication: CROHN^S DISEASE
     Dosage: 5mg/kg
     Dates: start: 2009
  8. 5-ASA/SULFASAZALIN [Concomitant]
     Indication: PRODUCT USED FOR UNKNOWN INDICATION
  9. CORTISOL [Concomitant]
     Indication: PRODUCT USED FOR UNKNOWN INDICATION

REACTIONS (3)
  - Ileus [Recovered/Resolved]
  - Ileal stenosis [Recovered/Resolved]
  - Abdominal pain [Recovered/Resolved]
